FAERS Safety Report 5367442-1 (Version None)
Quarter: 2007Q2

REPORT INFORMATION
  Report Type: 
  Country: None (occurrence: None)
  Receive Date: 20070622
  Receipt Date: 20060824
  Transmission Date: 20071010
  Serious: Yes (Other)
  Sender: FDA-Public Use
  Company Number: US-ASTRAZENECA-2006UW16763

PATIENT
  Age: 3 Year
  Sex: Female

DRUGS (5)
  1. PULMICORT RESPULES [Suspect]
     Indication: ASTHMA
     Route: 055
  2. PULMICORT RESPULES [Suspect]
     Route: 055
  3. PULMICORT RESPULES [Suspect]
     Route: 055
  4. VITAMIN CAP [Concomitant]
  5. ALBUTEROL [Concomitant]

REACTIONS (1)
  - GROWTH RETARDATION [None]
